FAERS Safety Report 11777967 (Version 1)
Quarter: 2015Q4

REPORT INFORMATION
  Report Type: Spontaneous
  Country: PE (occurrence: PE)
  Receive Date: 20151125
  Receipt Date: 20151125
  Transmission Date: 20160304
  Serious: Yes (Other)
  Sender: FDA-Public Use
  Company Number: PE-PFIZER INC-2015384105

PATIENT
  Age: 82 Year
  Sex: Male

DRUGS (1)
  1. DETRUSITOL SR [Suspect]
     Active Substance: TOLTERODINE TARTRATE
     Indication: URINARY INCONTINENCE
     Dosage: UNK

REACTIONS (2)
  - Neoplasm recurrence [Recovered/Resolved]
  - Bladder neoplasm [Recovered/Resolved]
